FAERS Safety Report 14237968 (Version 1)
Quarter: 2017Q4

REPORT INFORMATION
  Report Type: Spontaneous
  Country: US (occurrence: US)
  Receive Date: 20171130
  Receipt Date: 20171130
  Transmission Date: 20180321
  Serious: No
  Sender: FDA-Public Use
  Company Number: US-ASTRAZENECA-2017SF21379

PATIENT
  Age: 30770 Day
  Sex: Female
  Weight: 65.8 kg

DRUGS (7)
  1. DALIRESP [Suspect]
     Active Substance: ROFLUMILAST
     Indication: CHRONIC OBSTRUCTIVE PULMONARY DISEASE
     Route: 048
     Dates: start: 20171113, end: 20171123
  2. TOBRAMYCIN. [Concomitant]
     Active Substance: TOBRAMYCIN
     Indication: INFECTION
     Route: 053
  3. PREDNISONE. [Concomitant]
     Active Substance: PREDNISONE
     Indication: WHEEZING
     Route: 048
  4. PREDNISONE. [Concomitant]
     Active Substance: PREDNISONE
     Indication: WHEEZING
     Route: 048
  5. DALIRESP [Suspect]
     Active Substance: ROFLUMILAST
     Indication: CHRONIC OBSTRUCTIVE PULMONARY DISEASE
     Dosage: HALF A TABLET
     Route: 048
     Dates: start: 20171119, end: 20171123
  6. DALIRESP [Suspect]
     Active Substance: ROFLUMILAST
     Indication: BRONCHITIS
     Route: 048
     Dates: start: 20171113, end: 20171123
  7. DALIRESP [Suspect]
     Active Substance: ROFLUMILAST
     Indication: BRONCHITIS
     Dosage: HALF A TABLET
     Route: 048
     Dates: start: 20171119, end: 20171123

REACTIONS (5)
  - Insomnia [Unknown]
  - Back pain [Recovered/Resolved]
  - Tremor [Recovered/Resolved]
  - Intentional product misuse [Recovered/Resolved]
  - Diarrhoea [Recovered/Resolved]

NARRATIVE: CASE EVENT DATE: 20171113
